FAERS Safety Report 12354284 (Version 1)
Quarter: 2016Q2

REPORT INFORMATION
  Report Type: Spontaneous
  Country: US (occurrence: US)
  Receive Date: 20160511
  Receipt Date: 20160511
  Transmission Date: 20160815
  Serious: Yes (Other)
  Sender: FDA-Public Use
  Company Number: US-BAYER-2016-085933

PATIENT
  Age: 36 Year
  Sex: Female

DRUGS (1)
  1. ALEVE [Suspect]
     Active Substance: NAPROXEN SODIUM
     Indication: ANALGESIC THERAPY
     Dosage: 1-2 CAPLETS, UNK
     Route: 048
     Dates: end: 20160502

REACTIONS (4)
  - Vomiting [None]
  - Suicidal ideation [None]
  - Intentional overdose [None]
  - Dizziness [None]

NARRATIVE: CASE EVENT DATE: 20160502
